FAERS Safety Report 12543814 (Version 1)
Quarter: 2016Q3

REPORT INFORMATION
  Report Type: Spontaneous
  Country: US (occurrence: US)
  Receive Date: 20160711
  Receipt Date: 20160711
  Transmission Date: 20161109
  Serious: No
  Sender: FDA-Public Use
  Company Number: US-JAZZ-2016-US-000371

PATIENT
  Sex: Female

DRUGS (30)
  1. CLARINEX [Concomitant]
     Active Substance: DESLORATADINE
  2. LAMICTAL [Concomitant]
     Active Substance: LAMOTRIGINE
  3. LEVOTHYROXINE. [Concomitant]
     Active Substance: LEVOTHYROXINE
  4. PRAVASTATIN. [Concomitant]
     Active Substance: PRAVASTATIN
  5. PROBIOTIC PROX [Concomitant]
  6. TESTOSTERONE. [Concomitant]
     Active Substance: TESTOSTERONE
  7. VALSARTAN AND HYDROCHLOROTHIAZIDE [Concomitant]
     Active Substance: HYDROCHLOROTHIAZIDE\VALSARTAN
  8. DIFLUCAN [Concomitant]
     Active Substance: FLUCONAZOLE
  9. DIOVAN [Concomitant]
     Active Substance: VALSARTAN
  10. XYREM [Suspect]
     Active Substance: SODIUM OXYBATE
     Indication: FIBROMYALGIA
     Dosage: 2 G, FIRST DOSE
     Route: 048
     Dates: start: 201009, end: 201009
  11. L-METHYLFOLATE [Concomitant]
  12. PATANASE SPR [Concomitant]
  13. XYREM [Suspect]
     Active Substance: SODIUM OXYBATE
     Dosage: 3.75 G, SECOND DOSE
     Route: 048
     Dates: start: 201507
  14. MSM [Concomitant]
     Active Substance: DIMETHYL SULFONE
  15. PROGESTERONE. [Concomitant]
     Active Substance: PROGESTERONE
  16. PREGNENOLONE [Concomitant]
     Active Substance: PREGNENOLONE
  17. FLONASE [Concomitant]
     Active Substance: FLUTICASONE PROPIONATE
  18. CYMBALTA [Concomitant]
     Active Substance: DULOXETINE HYDROCHLORIDE
  19. SINGULAIR [Concomitant]
     Active Substance: MONTELUKAST SODIUM
  20. XYREM [Suspect]
     Active Substance: SODIUM OXYBATE
     Dosage: 1 G, SECOND DOSE
     Route: 048
     Dates: start: 201009, end: 201009
  21. XYREM [Suspect]
     Active Substance: SODIUM OXYBATE
     Dosage: 5 G, FIRST DOSE
     Route: 048
     Dates: start: 201507
  22. COQ10 [Concomitant]
     Active Substance: UBIDECARENONE
  23. WELLBUTRIN XL [Concomitant]
     Active Substance: BUPROPION HYDROCHLORIDE
  24. ZANAFLEX [Concomitant]
     Active Substance: TIZANIDINE HYDROCHLORIDE
  25. DEPLIN [Concomitant]
     Active Substance: LEVOMEFOLATE CALCIUM
  26. LIOTHYRONINE SODIUM. [Concomitant]
     Active Substance: LIOTHYRONINE SODIUM
  27. NIASPAN ER [Concomitant]
     Active Substance: NIACIN
  28. XYREM [Suspect]
     Active Substance: SODIUM OXYBATE
     Dosage: DOSE ADJUSTMENTS
     Route: 048
  29. CHROMIUM [Concomitant]
     Active Substance: CHROMIC CHLORIDE\CHROMIUM
  30. FIORICET [Concomitant]
     Active Substance: ACETAMINOPHEN\BUTALBITAL\CAFFEINE

REACTIONS (2)
  - Asthma [Recovering/Resolving]
  - Therapeutic response unexpected [Unknown]
